FAERS Safety Report 17199019 (Version 2)
Quarter: 2020Q2

REPORT INFORMATION
  Report Type: Report from Study
  Country: US (occurrence: US)
  Receive Date: 20191225
  Receipt Date: 20200521
  Transmission Date: 20200713
  Serious: No
  Sender: FDA-Public Use
  Company Number: PHHY2018US135368

PATIENT
  Age: 27 Year
  Sex: Female

DRUGS (2)
  1. GILENYA [Suspect]
     Active Substance: FINGOLIMOD HYDROCHLORIDE
     Indication: MULTIPLE SCLEROSIS
     Dosage: UNK, QD
     Route: 048
  2. METHYLPREDNISOLONE. [Concomitant]
     Active Substance: METHYLPREDNISOLONE
     Indication: MUSCLE SPASMS
     Dosage: UNK
     Route: 065
     Dates: start: 20190405, end: 20190405

REACTIONS (7)
  - Hypoaesthesia [Unknown]
  - Weight increased [Not Recovered/Not Resolved]
  - Muscle spasms [Recovered/Resolved]
  - Palpitations [Unknown]
  - Ataxia [Unknown]
  - Muscle spasms [Unknown]
  - Micturition urgency [Unknown]

NARRATIVE: CASE EVENT DATE: 20190405
